FAERS Safety Report 17928461 (Version 1)
Quarter: 2020Q2

REPORT INFORMATION
  Report Type: Spontaneous
  Country: DE (occurrence: DE)
  Receive Date: 20200623
  Receipt Date: 20200623
  Transmission Date: 20200714
  Serious: Yes (Other)
  Sender: FDA-Public Use
  Company Number: NVSC2020DE173527

PATIENT
  Age: 59 Year
  Sex: Male

DRUGS (3)
  1. VALSARTAN + HCT [Suspect]
     Active Substance: HYDROCHLOROTHIAZIDE\VALSARTAN
     Indication: PRODUCT USED FOR UNKNOWN INDICATION
     Dosage: UNK(1 DF CONTAINS 320 MG VALSARTAN AND 25 MG HYDROCHLOROTHIAZIDE)
     Route: 048
     Dates: start: 20120910
  2. VALSARTAN. [Suspect]
     Active Substance: VALSARTAN
     Indication: HYPERTENSION
     Dosage: 320 MG, QD
     Route: 065
     Dates: start: 20111201
  3. OPIPRAMOL [Concomitant]
     Active Substance: OPIPRAMOL
     Indication: CUBITAL TUNNEL SYNDROME
     Dosage: UNK
     Route: 065

REACTIONS (8)
  - Product impurity [Unknown]
  - Emotional distress [Unknown]
  - Disturbance in attention [Unknown]
  - Anxiety disorder [Unknown]
  - Fear of disease [Unknown]
  - Chronic kidney disease [Unknown]
  - Loss of personal independence in daily activities [Unknown]
  - Sleep disorder [Unknown]

NARRATIVE: CASE EVENT DATE: 201807
